FAERS Safety Report 4788653-X (Version None)
Quarter: 2005Q4

REPORT INFORMATION
  Report Type: 
  Country: None (occurrence: None)
  Receive Date: 20051005
  Receipt Date: 20050930
  Transmission Date: 20060501
  Serious: Yes (Life-Threatening, Hospitalization, Other)
  Sender: FDA-Public Use
  Company Number: 20050905706

PATIENT
  Age: 70 Year
  Sex: Female

DRUGS (7)
  1. BLINDED TRIAL MEDICATION [Suspect]
     Indication: CARDIAC FAILURE
     Dates: start: 20050711
  2. ROSIGLITAZONE MALEATE [Suspect]
     Indication: DIABETES MELLITUS
     Dosage: 4MG PER DAY
     Route: 048
  3. GLIMEPIRIDE [Suspect]
     Indication: DIABETES MELLITUS
  4. TOPROL-XL [Concomitant]
  5. ACCUPRIL [Concomitant]
  6. LASIX [Concomitant]
  7. ZOCOR [Concomitant]

REACTIONS (5)
  - CONFUSIONAL STATE [None]
  - DIZZINESS [None]
  - HYPERHIDROSIS [None]
  - HYPOGLYCAEMIA [None]
  - LETHARGY [None]
